FAERS Safety Report 5643773-2 (Version None)
Quarter: 2008Q1

REPORT INFORMATION
  Report Type: 
  Country: None (occurrence: None)
  Receive Date: 20080226
  Receipt Date: 20080215
  Transmission Date: 20080703
  Serious: Yes (Life-Threatening, Other)
  Sender: FDA-Public Use
  Company Number: 45379

PATIENT
  Age: 49 Year
  Sex: Male

DRUGS (1)
  1. ACETAZOLAMIDE [Suspect]
     Indication: ATAXIA
     Dosage: 250MG/X4 A DAY

REACTIONS (5)
  - ATAXIA [None]
  - CONDITION AGGRAVATED [None]
  - HYPERAMMONAEMIA [None]
  - METABOLIC ACIDOSIS [None]
  - UPPER RESPIRATORY TRACT INFECTION [None]
